FAERS Safety Report 23199958 (Version 1)
Quarter: 2023Q4

REPORT INFORMATION
  Report Type: Other
  Country: MM (occurrence: None)
  Receive Date: 20231117
  Receipt Date: 20231117
  Transmission Date: 20240110
  Serious: Yes (Death)
  Sender: FDA-Public Use
  Company Number: MM-ROCHE-3458620

PATIENT
  Age: 41 Year
  Sex: Male

DRUGS (3)
  1. TECENTRIQ [Suspect]
     Active Substance: ATEZOLIZUMAB
     Indication: Hepatic cancer
     Dosage: ON 17/JUL/2023, HE RECEIVED LAST DOSE OF TECENTRIQ.
     Route: 041
     Dates: start: 20230626
  2. AVASTIN [Suspect]
     Active Substance: BEVACIZUMAB
     Indication: Hepatic cancer
     Dosage: ON 17/JUL/2023, HE RECEIVED LAST DOSE OF AVASTIN.
     Route: 042
     Dates: start: 20230626
  3. AVASTIN [Suspect]
     Active Substance: BEVACIZUMAB
     Dosage: 2 UNITS OF 100 MG WAS GIVEN.?ON 17/JUL/2023, HE RECEIVED LAST DOSE OF AVASTIN.
     Route: 042
     Dates: start: 20230626

REACTIONS (1)
  - Death [Fatal]

NARRATIVE: CASE EVENT DATE: 20230901
